FAERS Safety Report 13796323 (Version 1)
Quarter: 2017Q3

REPORT INFORMATION
  Report Type: Spontaneous
  Country: BR (occurrence: BR)
  Receive Date: 20170726
  Receipt Date: 20170726
  Transmission Date: 20171127
  Serious: Yes (Other)
  Sender: FDA-Public Use
  Company Number: ALCN2017BR004620

PATIENT
  Age: 60 Year
  Sex: Female

DRUGS (2)
  1. PRED FORT [Suspect]
     Active Substance: PREDNISOLONE ACETATE
     Indication: POSTOPERATIVE CARE
     Dosage: UNK UNK, Q2H
     Route: 047
  2. MYDRIACYL [Suspect]
     Active Substance: TROPICAMIDE
     Indication: POSTOPERATIVE CARE
     Dosage: UNK UNK, Q8H
     Route: 047

REACTIONS (2)
  - Iridocyclitis [Recovered/Resolved]
  - Intraocular pressure decreased [Unknown]

NARRATIVE: CASE EVENT DATE: 20170522
